FAERS Safety Report 4890781-5 (Version None)
Quarter: 2006Q1

REPORT INFORMATION
  Report Type: 
  Country: None (occurrence: None)
  Receive Date: 20060123
  Receipt Date: 20060112
  Transmission Date: 20060701
  Serious: Yes (Death)
  Sender: FDA-Public Use
  Company Number: 2006-BP-00327RO

PATIENT
  Age: 77 Year
  Sex: Female

DRUGS (2)
  1. ROXICET [Suspect]
     Dates: end: 20040829
  2. ALCOHOL (ETHANOL) [Suspect]
     Dates: end: 20040829

REACTIONS (2)
  - ALCOHOL POISONING [None]
  - DRUG TOXICITY [None]
